FAERS Safety Report 16250441 (Version 1)
Quarter: 2019Q2

REPORT INFORMATION
  Report Type: Spontaneous
  Country: US (occurrence: US)
  Receive Date: 20190429
  Receipt Date: 20190429
  Transmission Date: 20190711
  Serious: Yes (Hospitalization)
  Sender: FDA-Public Use
  Company Number: US-PFIZER INC-2019176282

PATIENT
  Age: 76 Year
  Sex: Female

DRUGS (3)
  1. PEMBROLIZUMAB. [Suspect]
     Active Substance: PEMBROLIZUMAB
     Indication: LUNG ADENOCARCINOMA
     Dosage: UNK, EVERY 3 WEEKS
     Route: 042
  2. CARBOPLATIN. [Suspect]
     Active Substance: CARBOPLATIN
     Indication: LUNG ADENOCARCINOMA
     Dosage: UNK, EVERY 3 WEEKS
     Route: 042
  3. PEMETREXED. [Suspect]
     Active Substance: PEMETREXED
     Indication: LUNG ADENOCARCINOMA
     Dosage: UNK, EVERY 3 WEEKS
     Route: 042

REACTIONS (3)
  - Pulmonary toxicity [Recovering/Resolving]
  - Pneumonitis [Recovering/Resolving]
  - Respiratory failure [Recovering/Resolving]
